FAERS Safety Report 23882028 (Version 1)
Quarter: 2024Q2

REPORT INFORMATION
  Report Type: Spontaneous
  Country: US (occurrence: US)
  Receive Date: 20240521
  Receipt Date: 20240521
  Transmission Date: 20240715
  Serious: No
  Sender: FDA-Public Use
  Company Number: US-AMGEN-USASP2024098304

PATIENT
  Age: 40 Year
  Sex: Female

DRUGS (14)
  1. OTEZLA [Suspect]
     Active Substance: APREMILAST
     Indication: Psoriasis
     Dosage: 30 MILLIGRAM, BID
     Route: 048
  2. HYDROXYZINE PAMOATE [Concomitant]
     Active Substance: HYDROXYZINE PAMOATE
  3. VITAMIN D3 [Concomitant]
     Active Substance: CHOLECALCIFEROL
  4. TRIAMCINOLONE ACETONIDE [Concomitant]
     Active Substance: TRIAMCINOLONE ACETONIDE
  5. LITHIUM CARBONATE [Concomitant]
     Active Substance: LITHIUM CARBONATE
  6. MIRTAZAPINE [Concomitant]
     Active Substance: MIRTAZAPINE
  7. OLANZAPINE [Concomitant]
     Active Substance: OLANZAPINE
  8. ATORVASTATIN CALCIUM [Concomitant]
     Active Substance: ATORVASTATIN CALCIUM
  9. LISINOPRIL [Concomitant]
     Active Substance: LISINOPRIL
  10. GABAPENTIN [Concomitant]
     Active Substance: GABAPENTIN
  11. IBUPROFEN [Concomitant]
     Active Substance: IBUPROFEN
  12. TYLENOL EXTRA STRENGTH [Concomitant]
     Active Substance: ACETAMINOPHEN
  13. FAMOTIDINE [Concomitant]
     Active Substance: FAMOTIDINE
  14. DICLOFENAC SODIUM [Concomitant]
     Active Substance: DICLOFENAC\DICLOFENAC SODIUM

REACTIONS (2)
  - Ankle fracture [Unknown]
  - Fall [Unknown]

NARRATIVE: CASE EVENT DATE: 20240415
